FAERS Safety Report 5591338-3 (Version None)
Quarter: 2008Q1

REPORT INFORMATION
  Report Type: 
  Country: None (occurrence: None)
  Receive Date: 20080109
  Receipt Date: 20080109
  Transmission Date: 20080703
  Serious: Yes (Other)
  Sender: FDA-Public Use
  Company Number: None

PATIENT
  Age: 71 Year
  Sex: Male

DRUGS (13)
  1. SIROLIMUS [Suspect]
     Indication: RENAL CELL CARCINOMA
     Dosage: 2 MG PO QD
     Route: 048
     Dates: start: 20070322, end: 20071129
  2. TARCEVA [Suspect]
     Dosage: 150 MG PO QD
     Route: 048
     Dates: start: 20070315, end: 20071129
  3. CARVEDILOL [Concomitant]
  4. ATORVASTATIN [Concomitant]
  5. LORATADINE [Concomitant]
  6. PLAVIX [Concomitant]
  7. ACIPHEX [Concomitant]
  8. COMPAZINE [Concomitant]
  9. ASPIRIN [Concomitant]
  10. PERCOCET [Concomitant]
  11. PROMETHAZINE [Concomitant]
  12. FUROSEMIDE [Concomitant]
  13. ACE INHIBITOR [Concomitant]

REACTIONS (3)
  - CONDITION AGGRAVATED [None]
  - EJECTION FRACTION DECREASED [None]
  - OEDEMA PERIPHERAL [None]
